FAERS Safety Report 6020110-5 (Version None)
Quarter: 2008Q4

REPORT INFORMATION
  Report Type: 
  Country: None (occurrence: None)
  Receive Date: 20081221
  Receipt Date: 20081221
  Transmission Date: 20090506
  Serious: Yes (Life-Threatening, Hospitalization, Disabling)
  Sender: FDA-Public Use
  Company Number: None

PATIENT
  Sex: Male
  Weight: 90.7194 kg

DRUGS (1)
  1. CELEBREX [Suspect]
     Dosage: ONE EVERY 12 HR.
     Dates: start: 20000624, end: 20010217

REACTIONS (4)
  - CHEST PAIN [None]
  - HYPERHIDROSIS [None]
  - NAUSEA [None]
  - SELF-INDUCED VOMITING [None]
